FAERS Safety Report 25370314 (Version 1)
Quarter: 2025Q2

REPORT INFORMATION
  Report Type: Spontaneous
  Country: US (occurrence: US)
  Receive Date: 20250528
  Receipt Date: 20250528
  Transmission Date: 20250716
  Serious: No
  Sender: SANOFI AVENTIS
  Company Number: US-SA-2025SA151552

PATIENT
  Sex: Male

DRUGS (16)
  1. KEVZARA [Suspect]
     Active Substance: SARILUMAB
     Indication: Polymyalgia rheumatica
     Dosage: 200 MG, QOW
     Route: 058
  2. PREDNISONE [Suspect]
     Active Substance: PREDNISONE
  3. FENOFIBRATE [Concomitant]
     Active Substance: FENOFIBRATE
  4. OMEPRAZOLE [Concomitant]
     Active Substance: OMEPRAZOLE
  5. LOSARTAN POTASSIUM [Concomitant]
     Active Substance: LOSARTAN POTASSIUM
  6. VITAMINS [Concomitant]
     Active Substance: VITAMINS
  7. GABAPENTIN [Concomitant]
     Active Substance: GABAPENTIN
  8. VITAMIN D3 [Concomitant]
     Active Substance: CHOLECALCIFEROL
  9. ELIQUIS [Concomitant]
     Active Substance: APIXABAN
  10. METOPROLOL SUCCINATE [Concomitant]
     Active Substance: METOPROLOL SUCCINATE
  11. FARXIGA [Concomitant]
     Active Substance: DAPAGLIFLOZIN PROPANEDIOL
  12. HUMALOG [Concomitant]
     Active Substance: INSULIN LISPRO
  13. SEMGLEE (INSULIN GLARGINE-YFGN) [Concomitant]
     Active Substance: INSULIN GLARGINE-YFGN
  14. AMLODIPINE BESYLATE [Concomitant]
     Active Substance: AMLODIPINE BESYLATE
  15. METHOTREXATE [Concomitant]
     Active Substance: METHOTREXATE
  16. MOUNJARO [Concomitant]
     Active Substance: TIRZEPATIDE

REACTIONS (2)
  - Fracture pain [Unknown]
  - Blood glucose abnormal [Unknown]
